FAERS Safety Report 24065401 (Version 1)
Quarter: 2024Q3

REPORT INFORMATION
  Report Type: Report from Study
  Country: US (occurrence: US)
  Receive Date: 20240709
  Receipt Date: 20240709
  Transmission Date: 20241017
  Serious: Yes (Hospitalization, Other)
  Sender: BAYER
  Company Number: US-BAYER-2024A095044

PATIENT
  Age: 62 Year
  Sex: Male

DRUGS (8)
  1. NUBEQA [Suspect]
     Active Substance: DAROLUTAMIDE
     Indication: Hormone-refractory prostate cancer
     Dosage: 600 MG, BID
     Route: 048
     Dates: start: 20231120
  2. NUBEQA [Suspect]
     Active Substance: DAROLUTAMIDE
     Indication: Metastases to bone
  3. NUBEQA [Suspect]
     Active Substance: DAROLUTAMIDE
     Indication: Metastases to lymph nodes
  4. NUBEQA [Suspect]
     Active Substance: DAROLUTAMIDE
     Indication: Metastases to bone marrow
  5. NUBEQA [Suspect]
     Active Substance: DAROLUTAMIDE
     Indication: Metastasis
  6. NUBEQA [Suspect]
     Active Substance: DAROLUTAMIDE
     Indication: Metastases to nervous system
  7. DOCETAXEL [Concomitant]
     Active Substance: DOCETAXEL\DOCETAXEL ANHYDROUS
     Indication: Prostate cancer
     Dosage: UNK
  8. LUPRON [Concomitant]
     Active Substance: LEUPROLIDE ACETATE
     Indication: Prostate cancer
     Dosage: UNK

REACTIONS (5)
  - Cerebrovascular accident [None]
  - Nephrolithiasis [None]
  - Asthenia [None]
  - Somnolence [None]
  - Lethargy [None]
